FAERS Safety Report 9236262 (Version 1)
Quarter: 2013Q2

REPORT INFORMATION
  Report Type: Spontaneous
  Country: GB (occurrence: GB)
  Receive Date: 20130417
  Receipt Date: 20130417
  Transmission Date: 20140414
  Serious: Yes (Other)
  Sender: FDA-Public Use
  Company Number: GB-PFIZER INC-2013115604

PATIENT
  Age: 70 Year
  Sex: Female
  Weight: 67.58 kg

DRUGS (14)
  1. RAMIPRIL [Suspect]
     Dosage: UNK
     Dates: start: 20130403
  2. CALCIUM CARBONATE [Concomitant]
     Dates: start: 20121213, end: 20130318
  3. BENDROFLUMETHIAZIDE [Concomitant]
     Dates: start: 20121213, end: 20130318
  4. PIROXICAM [Concomitant]
     Dosage: UNK
     Dates: start: 20121213
  5. PROPRANOLOL [Concomitant]
     Dosage: UNK
     Dates: start: 20121213, end: 20130318
  6. RALOXIFENE [Concomitant]
     Dates: start: 20121213
  7. CINNARIZINE [Concomitant]
     Dates: start: 20130116
  8. BETAHISTINE [Concomitant]
     Dates: start: 20130123, end: 20130220
  9. LIDOCAINE HYDROCHLORIDE [Concomitant]
     Dates: start: 20130123, end: 20130124
  10. TRIAMCINOLONE ACETONIDE [Concomitant]
     Dates: start: 20130123, end: 20130124
  11. LAXIDO [Concomitant]
     Dosage: UNK
     Dates: start: 20130212, end: 20130213
  12. OMEPRAZOLE [Concomitant]
     Dates: start: 20130227, end: 20130327
  13. LOSARTAN [Concomitant]
     Dates: start: 20130403
  14. ADCAL [Concomitant]
     Dosage: UNK
     Dates: start: 20121213, end: 20130318

REACTIONS (3)
  - Hypersensitivity [Recovering/Resolving]
  - Blister [Recovering/Resolving]
  - Lip swelling [Recovering/Resolving]
